FAERS Safety Report 6143600-3 (Version None)
Quarter: 2009Q2

REPORT INFORMATION
  Report Type: 
  Country: None (occurrence: None)
  Receive Date: 20090403
  Receipt Date: 20090324
  Transmission Date: 20091009
  Serious: Yes (Death, Other)
  Sender: FDA-Public Use
  Company Number: JP-ABBOTT-08P-087-0482584-00

PATIENT
  Age: 74 Year
  Sex: Male

DRUGS (14)
  1. LEUPLIN SR FOR INJECTION 11.25 MG [Suspect]
     Indication: PROSTATE CANCER STAGE IV
     Route: 058
     Dates: start: 20071120, end: 20080205
  2. BASEN OD [Concomitant]
     Indication: DIABETES MELLITUS
     Route: 048
  3. BLOPRESS [Concomitant]
     Indication: HYPERTENSION
     Route: 048
  4. CASODEX [Concomitant]
     Indication: PROSTATE CANCER STAGE IV
     Route: 048
     Dates: start: 20080122, end: 20080212
  5. DAONIL [Concomitant]
     Indication: DIABETES MELLITUS
     Route: 048
  6. ASPIRIN [Concomitant]
     Indication: CEREBROVASCULAR DISORDER
     Route: 048
  7. LASIX [Concomitant]
     Indication: RENAL IMPAIRMENT
     Route: 048
  8. ADALAT CC [Concomitant]
     Indication: HYPERTENSION
     Route: 048
  9. WYTENS [Concomitant]
     Indication: HYPERTENSION
     Route: 048
  10. THYRADIN-S [Concomitant]
     Indication: HYPOTHYROIDISM
     Route: 048
  11. METFORMIN HCL [Concomitant]
     Indication: DIABETES MELLITUS
     Route: 048
  12. ADRIAMYCIN RDF [Concomitant]
     Indication: PROSTATE CANCER STAGE IV
     Route: 050
     Dates: start: 20080214, end: 20080302
  13. CISPLATIN [Concomitant]
     Indication: PROSTATE CANCER STAGE IV
     Route: 042
     Dates: start: 20080215, end: 20080215
  14. VEPESID [Concomitant]
     Indication: PROSTATE CANCER STAGE IV
     Route: 042
     Dates: start: 20080218, end: 20080220

REACTIONS (2)
  - METASTASES TO LYMPH NODES [None]
  - PROSTATE CANCER [None]
